FAERS Safety Report 24751134 (Version 1)
Quarter: 2024Q4

REPORT INFORMATION
  Report Type: Spontaneous
  Country: US (occurrence: US)
  Receive Date: 20241219
  Receipt Date: 20241219
  Transmission Date: 20250115
  Serious: Yes (Life-Threatening, Hospitalization, Other)
  Sender: MERCK
  Company Number: US-009507513-2412USA003709

PATIENT
  Sex: Female

DRUGS (1)
  1. KEYTRUDA [Suspect]
     Active Substance: PEMBROLIZUMAB
     Indication: Triple negative breast cancer
     Dosage: UNK

REACTIONS (47)
  - Epistaxis [Unknown]
  - Vomiting [Unknown]
  - Diarrhoea [Unknown]
  - Anxiety [Unknown]
  - Ill-defined disorder [Unknown]
  - Fatigue [Unknown]
  - Feeding disorder [Unknown]
  - Pain in extremity [Unknown]
  - Pain [Unknown]
  - Pyrexia [Unknown]
  - Decreased appetite [Unknown]
  - Dyspnoea [Unknown]
  - Hypothyroidism [Unknown]
  - Taste disorder [Unknown]
  - Urinary tract infection [Unknown]
  - Mineral deficiency [Unknown]
  - Blood sodium decreased [Unknown]
  - Adrenal insufficiency [Unknown]
  - Hypotension [Unknown]
  - Haemoglobin decreased [Unknown]
  - Transfusion [Unknown]
  - Weight decreased [Unknown]
  - Brain fog [Unknown]
  - Gait disturbance [Unknown]
  - Disturbance in attention [Unknown]
  - Aphonia [Unknown]
  - Mouth ulceration [Unknown]
  - Ulcer [Unknown]
  - Ill-defined disorder [Unknown]
  - Heart rate irregular [Unknown]
  - Poor quality sleep [Unknown]
  - Increased tendency to bruise [Unknown]
  - Psychotic disorder [Unknown]
  - Chills [Unknown]
  - Tremor [Unknown]
  - Dizziness [Unknown]
  - Syncope [Unknown]
  - Back pain [Unknown]
  - Pruritus [Unknown]
  - Alopecia [Unknown]
  - Flank pain [Unknown]
  - Chromaturia [Unknown]
  - Dehydration [Unknown]
  - Mood altered [Unknown]
  - Behaviour disorder [Unknown]
  - Hypoxia [Unknown]
  - Balance disorder [Unknown]
